FAERS Safety Report 5528451-2 (Version None)
Quarter: 2007Q4

REPORT INFORMATION
  Report Type: 
  Country: None (occurrence: None)
  Receive Date: 20071128
  Receipt Date: 20071120
  Transmission Date: 20080405
  Serious: Yes (Hospitalization, Other)
  Sender: FDA-Public Use
  Company Number: GB-BOEHRINGER INGELHEIM PHARMACEUTICALS, INC.-2007-BP-24758YA

PATIENT
  Age: 4 Year
  Sex: Male
  Weight: 16 kg

DRUGS (2)
  1. TAMSULOSIN HCL [Suspect]
     Route: 048
     Dates: start: 20071017, end: 20071017
  2. TAMSULOSIN HCL [Suspect]
     Route: 048

REACTIONS (3)
  - BRADYCARDIA [None]
  - HYPERTENSION [None]
  - LETHARGY [None]
